FAERS Safety Report 18666538 (Version 2)
Quarter: 2021Q4

REPORT INFORMATION
  Report Type: Report from Study
  Country: US (occurrence: US)
  Receive Date: 20201227
  Receipt Date: 20211221
  Transmission Date: 20220304
  Serious: Yes (Other)
  Sender: FDA-Public Use
  Company Number: US-UCBSA-2020052951

PATIENT
  Age: 37 Year
  Sex: Female
  Weight: 66.68 kg

DRUGS (5)
  1. CERTOLIZUMAB PEGOL [Suspect]
     Active Substance: CERTOLIZUMAB PEGOL
     Indication: Rheumatoid arthritis
     Dosage: 400 MILLIGRAM, MONTHLY (QM)
     Route: 058
     Dates: start: 20190715, end: 20201215
  2. INFLUENZA VIRUS VACCINE [Concomitant]
     Active Substance: INFLUENZA VIRUS VACCINE
     Indication: Immunisation
     Dosage: 1 SHOT  A DAY
     Route: 030
     Dates: start: 20200925, end: 20200925
  3. MINERALS\VITAMINS [Concomitant]
     Active Substance: MINERALS\VITAMINS
     Indication: Product used for unknown indication
     Dosage: 1 PILL A DAY
     Route: 048
     Dates: start: 20201020
  4. ZOLOFT [Concomitant]
     Active Substance: SERTRALINE HYDROCHLORIDE
     Indication: Depression
     Dosage: 50 MILLIGRAM, ONCE DAILY (QD)
     Dates: start: 20200913
  5. MISOPROSTOL [Concomitant]
     Active Substance: MISOPROSTOL
     Indication: Abortion incomplete
     Dosage: 400 MICROGRAM, ONCE DAILY (QD)
     Route: 048
     Dates: start: 20201209, end: 20201210

REACTIONS (4)
  - Abortion spontaneous [Unknown]
  - Multiple pregnancy [Unknown]
  - Maternal exposure before pregnancy [Unknown]
  - Uterine dilation and curettage [Unknown]

NARRATIVE: CASE EVENT DATE: 20200927
